FAERS Safety Report 9096653 (Version 2)
Quarter: 2013Q1

REPORT INFORMATION
  Report Type: Spontaneous
  Country: US (occurrence: None)
  Receive Date: 20130124
  Receipt Date: 20130130
  Transmission Date: 20140127
  Serious: Yes (Hospitalization, Other)
  Sender: FDA-Public Use
  Company Number: 1566320

PATIENT
  Age: 60 Year
  Sex: Female
  Weight: 79.55 kg

DRUGS (5)
  1. VERAPAMIL HCL INJ, USP (VERAPAMIL HYDROCHLORIDE) [Suspect]
     Indication: BLOOD PRESSURE
  2. RIVAROXABAN [Suspect]
     Indication: PULMONARY THROMBOSIS
     Route: 048
  3. RIVAROXABAN [Suspect]
     Indication: INTRACARDIAC THROMBUS
     Route: 048
  4. QUINAPRIL [Suspect]
     Indication: BLOOD PRESSURE
  5. OMEPRAZOLE [Concomitant]

REACTIONS (6)
  - Cystitis [None]
  - Hypertension [None]
  - Hypotension [None]
  - Fluid retention [None]
  - Local swelling [None]
  - Incorrect dose administered [None]
